FAERS Safety Report 5254185-8 (Version None)
Quarter: 2007Q1

REPORT INFORMATION
  Report Type: 
  Country: None (occurrence: None)
  Receive Date: 20070302
  Receipt Date: 20070216
  Transmission Date: 20070707
  Serious: Yes (Other)
  Sender: FDA-Public Use
  Company Number: US-PFIZER INC-2007012657

PATIENT
  Age: 2 Month
  Sex: Female

DRUGS (6)
  1. AZITHROMYCIN [Suspect]
  2. AMPICILLIN [Concomitant]
  3. CEFOTAXIME [Concomitant]
  4. BETHANECHOL [Concomitant]
  5. LANSOPRAZOLE [Concomitant]
  6. IRON [Concomitant]

REACTIONS (1)
  - OBSTRUCTION GASTRIC [None]
